FAERS Safety Report 6477542-0 (Version None)
Quarter: 2009Q4

REPORT INFORMATION
  Report Type: 
  Country: None (occurrence: None)
  Receive Date: 20091207
  Receipt Date: 20091106
  Transmission Date: 20100525
  Serious: No
  Sender: FDA-Public Use
  Company Number: US-BAYER-200939064NA

PATIENT
  Sex: Female

DRUGS (1)
  1. DROSPIRENONE AND EHTINYL ESTRADIOL [Suspect]
     Indication: COAGULATION FACTOR VIII LEVEL DECREASED

REACTIONS (1)
  - POLYMENORRHOEA [None]
